FAERS Safety Report 7629073-X (Version None)
Quarter: 2011Q3

REPORT INFORMATION
  Report Type: 
  Country: None (occurrence: None)
  Receive Date: 20110722
  Receipt Date: 20110722
  Transmission Date: 20111222
  Serious: No
  Sender: FDA-Public Use
  Company Number: None

PATIENT
  Age: 63 Year
  Sex: Female
  Weight: 74.389 kg

DRUGS (1)
  1. MAXZIDE [Suspect]
     Indication: HYPERTENSION
     Dosage: 1/2 TABLET
     Route: 002
     Dates: start: 20110712, end: 20110712

REACTIONS (2)
  - PRODUCT SUBSTITUTION ISSUE [None]
  - DRY MOUTH [None]
